FAERS Safety Report 16832881 (Version 2)
Quarter: 2020Q2

REPORT INFORMATION
  Report Type: Spontaneous
  Country: DE (occurrence: DE)
  Receive Date: 20190920
  Receipt Date: 20200605
  Transmission Date: 20200713
  Serious: Yes (Other)
  Sender: FDA-Public Use
  Company Number: DE-AMGEN-DEUSP2019153140

PATIENT
  Age: 78 Year
  Sex: Female

DRUGS (2)
  1. TALIMOGENE LAHERPAREPVEC [Suspect]
     Active Substance: TALIMOGENE LAHERPAREPVEC
     Indication: METASTASES TO VAGINA
     Dosage: 10^8 PFU/ML, Q2WK
     Route: 026
  2. TALIMOGENE LAHERPAREPVEC [Suspect]
     Active Substance: TALIMOGENE LAHERPAREPVEC
     Indication: URETHRAL MELANOMA METASTATIC
     Dosage: 10^6 PFU/ML
     Route: 026

REACTIONS (4)
  - Therapy partial responder [Unknown]
  - Urethral melanoma metastatic [Unknown]
  - Influenza like illness [Unknown]
  - Injection site haemorrhage [Unknown]
